FAERS Safety Report 10048416 (Version 1)
Quarter: 2014Q1

REPORT INFORMATION
  Report Type: Spontaneous
  Country: US (occurrence: None)
  Receive Date: 20140306
  Receipt Date: 20140306
  Transmission Date: 20141002
  Serious: Yes (Other)
  Sender: FDA-Public Use
  Company Number: 163-21880-12122937

PATIENT
  Age: 79 Year
  Sex: Female
  Weight: 75.75 kg

DRUGS (8)
  1. REVLIMID (LENALIDOMIDE) (5 MILLIGRAM, CAPSULES) [Suspect]
     Indication: MYELODYSPLASTIC SYNDROME
     Dosage: 5 MG, 1 IN 1 D, PO
     Route: 048
     Dates: start: 20120815
  2. ASPIRINE (ACETYLSALICYLIC ACID) (CHEWABLE TABLET) [Concomitant]
  3. FUROSEMIDE (FUROSEMIDE) (TABLETS) [Concomitant]
  4. OMEPRAZOLE (OMEPRAZOLE) [Concomitant]
  5. POTASSIUM (POTASSIUM) (TABLETS) [Concomitant]
  6. VITAMIN B COMPLEX (B-KOMPLEX ^LECIVA^) [Concomitant]
  7. VITAMIN D (ERGOCALCIFEROL) [Concomitant]
  8. VIDAZA (AZACITIDINE) (INJECTION) [Concomitant]

REACTIONS (5)
  - Pancytopenia [None]
  - White blood cell count decreased [None]
  - Treatment noncompliance [None]
  - Myelodysplastic syndrome [None]
  - Therapeutic response decreased [None]
